FAERS Safety Report 15003219 (Version 2)
Quarter: 2018Q2

REPORT INFORMATION
  Report Type: Spontaneous
  Country: IT (occurrence: IT)
  Receive Date: 20180613
  Receipt Date: 20180618
  Transmission Date: 20180711
  Serious: Yes (Other)
  Sender: FDA-Public Use
  Company Number: IT-AUROBINDO-AUR-APL-2018-030885

PATIENT
  Age: 75 Year
  Sex: Female

DRUGS (3)
  1. METRONIDAZOLE. [Suspect]
     Active Substance: METRONIDAZOLE
     Indication: HELICOBACTER INFECTION
     Dosage: 1000 MILLIGRAM, DAILY
     Route: 048
     Dates: start: 20180513
  2. AMOXICILLIN. [Suspect]
     Active Substance: AMOXICILLIN
     Indication: HELICOBACTER INFECTION
     Dosage: 1 GRAM, DAILY
     Route: 048
     Dates: start: 20180513
  3. CLARITHROMYCIN. [Suspect]
     Active Substance: CLARITHROMYCIN
     Indication: HELICOBACTER INFECTION
     Dosage: 1000 MILLIGRAM, DAILY
     Route: 048
     Dates: start: 20180513

REACTIONS (4)
  - Pharyngeal erythema [Unknown]
  - Tongue dry [Unknown]
  - Dysphagia [Unknown]
  - Mucosal inflammation [Unknown]

NARRATIVE: CASE EVENT DATE: 20180515
